FAERS Safety Report 6706545-3 (Version None)
Quarter: 2010Q2

REPORT INFORMATION
  Report Type: 
  Country: None (occurrence: None)
  Receive Date: 20100503
  Receipt Date: 20100429
  Transmission Date: 20101027
  Serious: Yes (Life-Threatening, Other)
  Sender: FDA-Public Use
  Company Number: PHHY2010IT25249

PATIENT
  Age: 30 Year
  Sex: Female

DRUGS (4)
  1. TEGRETOL [Suspect]
     Dosage: 20 POSOLOGIC UNIT
     Route: 048
     Dates: start: 20100312
  2. LORAZEPAM [Suspect]
     Dosage: UNK
     Route: 048
     Dates: start: 20100312
  3. HALDOL [Suspect]
     Dosage: UNK
     Route: 048
     Dates: start: 20100312
  4. SEROQUEL [Suspect]
     Dosage: 12000 MG
     Route: 048
     Dates: start: 20100312

REACTIONS (5)
  - COMA [None]
  - INTENTIONAL OVERDOSE [None]
  - INTENTIONAL SELF-INJURY [None]
  - TACHYCARDIA [None]
  - VOMITING [None]
